FAERS Safety Report 7414595-7 (Version None)
Quarter: 2011Q2

REPORT INFORMATION
  Report Type: 
  Country: None (occurrence: None)
  Receive Date: 20110411
  Receipt Date: 20110411
  Transmission Date: 20111010
  Serious: Yes (Other)
  Sender: FDA-Public Use
  Company Number: None

PATIENT
  Sex: Female
  Weight: 79.3795 kg

DRUGS (2)
  1. ATENOLOL [Concomitant]
  2. GEMFIBROZIL [Suspect]
     Indication: BLOOD TRIGLYCERIDES INCREASED
     Dosage: 600 MG 2XDAILY PO
     Route: 048
     Dates: start: 20080524, end: 20110406

REACTIONS (6)
  - QUALITY OF LIFE DECREASED [None]
  - MUSCLE SPASMS [None]
  - MYALGIA [None]
  - ASTHENIA [None]
  - EXERCISE TOLERANCE DECREASED [None]
  - IMPAIRED DRIVING ABILITY [None]
